FAERS Safety Report 6999815-5 (Version None)
Quarter: 2010Q3

REPORT INFORMATION
  Report Type: 
  Country: None (occurrence: None)
  Receive Date: 20100920
  Receipt Date: 20100909
  Transmission Date: 20110219
  Serious: Yes (Hospitalization)
  Sender: FDA-Public Use
  Company Number: US-AMGEN-KDL437267

PATIENT
  Sex: Female

DRUGS (1)
  1. ENBREL [Suspect]
     Indication: JUVENILE ARTHRITIS
     Route: 058
     Dates: start: 20050315

REACTIONS (8)
  - FALL [None]
  - HAEMORRHAGE [None]
  - INJECTION SITE HAEMATOMA [None]
  - JOINT INJURY [None]
  - LIMB INJURY [None]
  - SKIN LACERATION [None]
  - WOUND [None]
  - WOUND INFECTION BACTERIAL [None]
